FAERS Safety Report 19667169 (Version 1)
Quarter: 2021Q3

REPORT INFORMATION
  Report Type: Spontaneous
  Country: TR (occurrence: TR)
  Receive Date: 20210806
  Receipt Date: 20210806
  Transmission Date: 20211014
  Serious: Yes (Other)
  Sender: FDA-Public Use
  Company Number: TR-LUPIN PHARMACEUTICALS INC.-2021-13942

PATIENT
  Age: 33 Year
  Sex: Female

DRUGS (3)
  1. QUETIAPINE FUMARATE. [Suspect]
     Active Substance: QUETIAPINE FUMARATE
     Indication: PSYCHIATRIC SYMPTOM
     Dosage: 200 MILLIGRAM (STOPPED)
     Route: 065
  2. LORAZEPAM. [Suspect]
     Active Substance: LORAZEPAM
     Indication: PSYCHIATRIC SYMPTOM
     Dosage: 2 MILLIGRAM (STOPPED)
     Route: 065
  3. FLUOXETINE [Suspect]
     Active Substance: FLUOXETINE HYDROCHLORIDE
     Indication: PSYCHIATRIC SYMPTOM
     Dosage: 20 MILLIGRAM (STOPPED
     Route: 065

REACTIONS (2)
  - Off label use [None]
  - Drug ineffective for unapproved indication [Unknown]
